FAERS Safety Report 6287701-8 (Version None)
Quarter: 2009Q3

REPORT INFORMATION
  Report Type: 
  Country: None (occurrence: None)
  Receive Date: 20090727
  Receipt Date: 20090727
  Transmission Date: 20100115
  Serious: Yes (Life-Threatening, Hospitalization, Disabling)
  Sender: FDA-Public Use
  Company Number: None

PATIENT
  Sex: Female
  Weight: 65.7716 kg

DRUGS (1)
  1. YAZ [Suspect]
     Indication: CONTRACEPTION
     Dosage: 1 TABLET, DAILY, PO
     Route: 048
     Dates: start: 20080727, end: 20080914

REACTIONS (13)
  - ANXIETY [None]
  - AUTONOMIC NEUROPATHY [None]
  - BACK PAIN [None]
  - CHEST DISCOMFORT [None]
  - COUGH [None]
  - FATIGUE [None]
  - FEELING ABNORMAL [None]
  - HEADACHE [None]
  - MUSCLE SPASMS [None]
  - MUSCULAR WEAKNESS [None]
  - PULMONARY THROMBOSIS [None]
  - SINUS TACHYCARDIA [None]
  - WEIGHT DECREASED [None]
